FAERS Safety Report 17506110 (Version 1)
Quarter: 2020Q1

REPORT INFORMATION
  Report Type: Spontaneous
  Country: GB (occurrence: GB)
  Receive Date: 20200305
  Receipt Date: 20200305
  Transmission Date: 20200409
  Serious: Yes (Other)
  Sender: FDA-Public Use
  Company Number: GB-PFIZER INC-2020095013

PATIENT
  Sex: Male

DRUGS (1)
  1. PREGABALIN. [Suspect]
     Active Substance: PREGABALIN
     Dosage: UNK

REACTIONS (6)
  - Intentional self-injury [Recovered/Resolved]
  - Psychotic disorder [Recovered/Resolved]
  - Paranoia [Recovered/Resolved]
  - Suicide attempt [Recovered/Resolved]
  - Mutism [Recovered/Resolved]
  - Hallucination, auditory [Recovered/Resolved]
